FAERS Safety Report 7867056-5 (Version None)
Quarter: 2011Q4

REPORT INFORMATION
  Report Type: 
  Country: None (occurrence: None)
  Receive Date: 20111028
  Receipt Date: 20111019
  Transmission Date: 20120403
  Serious: Yes (Hospitalization)
  Sender: FDA-Public Use
  Company Number: NL-JNJFOC-20110602075

PATIENT
  Sex: Male
  Weight: 52.7 kg

DRUGS (10)
  1. FOLIUMZUUR [Concomitant]
  2. INFLIXIMAB, RECOMBINANT [Suspect]
     Route: 042
     Dates: start: 20110209
  3. HUMIRA [Concomitant]
     Indication: CROHN'S DISEASE
     Dates: start: 20101201, end: 20110202
  4. STEROIDS NOS [Concomitant]
  5. INFLIXIMAB, RECOMBINANT [Suspect]
     Indication: CROHN'S DISEASE
     Route: 042
     Dates: start: 20110323
  6. ADRENALIN IN OIL INJ [Concomitant]
  7. INFLIXIMAB, RECOMBINANT [Suspect]
     Route: 042
     Dates: start: 20110223
  8. METHOTREXATE [Concomitant]
     Indication: CROHN'S DISEASE
     Dates: start: 20091204, end: 20110304
  9. ANTIHISTAMINES [Concomitant]
  10. CALCIUM CARBONATE [Concomitant]

REACTIONS (1)
  - CROHN'S DISEASE [None]
